FAERS Safety Report 7902607-3 (Version None)
Quarter: 2011Q4

REPORT INFORMATION
  Report Type: 
  Country: None (occurrence: None)
  Receive Date: 20111108
  Receipt Date: 20111025
  Transmission Date: 20120403
  Serious: Yes (Other)
  Sender: FDA-Public Use
  Company Number: US-ROCHE-1007176

PATIENT
  Age: 57 Year
  Sex: Female
  Weight: 45.4 kg

DRUGS (8)
  1. VENLAFAXINE HCL [Suspect]
     Indication: MAJOR DEPRESSION
     Dates: start: 19910101
  2. COMPAZINE [Concomitant]
     Indication: ABDOMINAL DISCOMFORT
  3. METAMUCIL-2 [Concomitant]
  4. FLUOXETINE HCL [Suspect]
     Indication: MAJOR DEPRESSION
     Dates: start: 19910101, end: 20110101
  5. SYNTHROID [Concomitant]
  6. CLONAZEPAM [Suspect]
     Indication: PRODUCT USED FOR UNKNOWN INDICATION
  7. ZOLPIDEM TARTRATE [Suspect]
     Indication: INSOMNIA
  8. LACTULOSE [Concomitant]
     Indication: COLOSTOMY

REACTIONS (7)
  - OCULAR HYPERAEMIA [None]
  - LIGAMENT SPRAIN [None]
  - UNEVALUABLE EVENT [None]
  - MYDRIASIS [None]
  - WEIGHT INCREASED [None]
  - DRY MOUTH [None]
  - ARTHRALGIA [None]
